FAERS Safety Report 19497501 (Version 1)
Quarter: 2021Q3

REPORT INFORMATION
  Report Type: Spontaneous
  Country: DE (occurrence: DE)
  Receive Date: 20210706
  Receipt Date: 20210706
  Transmission Date: 20211014
  Serious: Yes (Hospitalization)
  Sender: FDA-Public Use
  Company Number: DE-TEVA-2021-DE-1929574

PATIENT
  Age: 80 Year
  Sex: Female
  Weight: 81 kg

DRUGS (9)
  1. GABAPENTIN. [Concomitant]
     Active Substance: GABAPENTIN
     Dosage: 2 DOSAGE FORMS DAILY; 300 MG, 0?0?2?0
     Route: 048
  2. LEVOTHYROXINE SODIUM. [Concomitant]
     Active Substance: LEVOTHYROXINE SODIUM
     Dosage: 1 DOSAGE FORMS DAILY; 0.15|0.05 MG, 1?0?0?0
     Route: 048
  3. OMEPRAZOL [Concomitant]
     Active Substance: OMEPRAZOLE
     Dosage: 40 MILLIGRAM DAILY; 1?0?0?0
     Route: 048
  4. CANDESARTAN. [Suspect]
     Active Substance: CANDESARTAN
     Dosage: .5 DOSAGE FORMS DAILY; 16 MG, 0.5?0?0?0
     Route: 048
  5. BISOPROLOL/HYDROCHLOROTHIAZIDE [Suspect]
     Active Substance: BISOPROLOL FUMARATE\HYDROCHLOROTHIAZIDE
     Dosage: .5 DOSAGE FORMS DAILY; 10|25 MG, 0.5?0?0?0
     Route: 048
  6. AMIODARON [Concomitant]
     Active Substance: AMIODARONE
     Dosage: 200 MILLIGRAM DAILY; 1?0?0?0
     Route: 048
  7. METFORMIN [Suspect]
     Active Substance: METFORMIN HYDROCHLORIDE
     Dosage: 2000 MILLIGRAM DAILY; 1?0?1?0
     Route: 048
  8. TORASEMID [Suspect]
     Active Substance: TORSEMIDE
     Dosage: 5 MILLIGRAM DAILY; 1?0?0?0
     Route: 048
  9. PHENPROCOUMON [Suspect]
     Active Substance: PHENPROCOUMON
     Dosage: 3 MG, ACCORDING TO THE SCHEME,MEDICATION ERRORS
     Route: 048

REACTIONS (3)
  - Haematoma [Unknown]
  - Product monitoring error [Unknown]
  - Fatigue [Unknown]
